FAERS Safety Report 12495526 (Version 1)
Quarter: 2016Q2

REPORT INFORMATION
  Report Type: Spontaneous
  Country: JP (occurrence: JP)
  Receive Date: 20160624
  Receipt Date: 20160624
  Transmission Date: 20160815
  Serious: Yes (Hospitalization)
  Sender: FDA-Public Use
  Company Number: JP-CONCORDIA PHARMACEUTICALS INC.-CO-ZO-JP-2016-072

PATIENT
  Age: 80 Year
  Sex: Female

DRUGS (2)
  1. ZONEGRAN [Suspect]
     Active Substance: ZONISAMIDE
     Indication: PRODUCT USED FOR UNKNOWN INDICATION
     Dosage: UNKNOWN
     Route: 048
  2. AMINOLEBAN [Concomitant]
     Active Substance: AMINO ACIDS
     Indication: HEPATIC FAILURE
     Dosage: UNKNOWN

REACTIONS (1)
  - Hyperammonaemia [Not Recovered/Not Resolved]
